FAERS Safety Report 19795072 (Version 1)
Quarter: 2021Q3

REPORT INFORMATION
  Report Type: Spontaneous
  Country: US (occurrence: US)
  Receive Date: 20210905
  Receipt Date: 20210905
  Transmission Date: 20211014
  Serious: No
  Sender: FDA-Public Use
  Company Number: None

PATIENT
  Age: 39 Year
  Sex: Female
  Weight: 81.9 kg

DRUGS (5)
  1. MOTRIN [Concomitant]
     Active Substance: IBUPROFEN
  2. MONTELUKAST [Concomitant]
     Active Substance: MONTELUKAST SODIUM
  3. VITAMIN D [Concomitant]
     Active Substance: VITAMIN D NOS
  4. ALLEGRA [Concomitant]
     Active Substance: FEXOFENADINE HYDROCHLORIDE
  5. REGEN?COV [Suspect]
     Active Substance: CASIRIVIMAB\IMDEVIMAB
     Indication: SARS-COV-2 TEST POSITIVE
     Dates: start: 20210905, end: 20210905

REACTIONS (4)
  - Pyrexia [None]
  - Fatigue [None]
  - Chills [None]
  - Infusion related reaction [None]

NARRATIVE: CASE EVENT DATE: 20210905
